FAERS Safety Report 9259302 (Version 1)
Quarter: 2013Q2

REPORT INFORMATION
  Report Type: Spontaneous
  Country: FR (occurrence: FR)
  Receive Date: 20130427
  Receipt Date: 20130427
  Transmission Date: 20140414
  Serious: Yes (Hospitalization)
  Sender: FDA-Public Use
  Company Number: FR-ROCHE-1218089

PATIENT
  Sex: Male

DRUGS (13)
  1. ROCEPHINE [Suspect]
     Indication: LUNG DISORDER
     Route: 065
     Dates: start: 20130312, end: 20130321
  2. PERFALGAN [Concomitant]
     Route: 065
     Dates: start: 20130221
  3. LOVENOX [Concomitant]
     Route: 065
     Dates: start: 20130221
  4. TOPALGIC [Concomitant]
     Route: 065
     Dates: start: 20130221
  5. VALIUM [Concomitant]
     Route: 065
     Dates: start: 20130221
  6. DUPHALAC [Concomitant]
     Route: 065
     Dates: start: 20130221
  7. AUGMENTIN [Concomitant]
     Route: 065
     Dates: start: 20130221, end: 20130312
  8. ALDACTONE (FRANCE) [Concomitant]
     Route: 065
  9. LASILIX [Concomitant]
     Indication: ASCITES
     Route: 065
     Dates: start: 20130305
  10. INEXIUM [Concomitant]
     Dosage: 40 MG/L
     Route: 065
     Dates: start: 20130308
  11. PROPRANOLOL [Concomitant]
     Route: 065
     Dates: start: 20130311
  12. FLAGYL [Concomitant]
     Route: 048
     Dates: start: 20130312
  13. ATARAX (FRANCE) [Concomitant]

REACTIONS (1)
  - Toxic skin eruption [Recovered/Resolved]
